FAERS Safety Report 6913966-2 (Version None)
Quarter: 2010Q3

REPORT INFORMATION
  Report Type: 
  Country: None (occurrence: None)
  Receive Date: 20100805
  Receipt Date: 20100805
  Transmission Date: 20110219
  Serious: Yes (Hospitalization)
  Sender: FDA-Public Use
  Company Number: None

PATIENT
  Age: 32 Year
  Sex: Male

DRUGS (1)
  1. METHADONE HCL [Suspect]
     Dates: start: 20100604

REACTIONS (2)
  - ACCIDENTAL OVERDOSE [None]
  - UNRESPONSIVE TO STIMULI [None]
